FAERS Safety Report 4811835-5 (Version None)
Quarter: 2005Q4

REPORT INFORMATION
  Report Type: 
  Country: None (occurrence: None)
  Receive Date: 20051026
  Receipt Date: 20051018
  Transmission Date: 20060501
  Serious: Yes (Death)
  Sender: FDA-Public Use
  Company Number: 2005JP001839

PATIENT
  Age: 39 Year
  Sex: Female

DRUGS (1)
  1. PROGRAF [Suspect]
     Indication: BONE MARROW TRANSPLANT
     Dates: start: 20040101, end: 20040101

REACTIONS (2)
  - HERPES ZOSTER [None]
  - PNEUMONIA VIRAL [None]
